FAERS Safety Report 25262779 (Version 1)
Quarter: 2025Q2

REPORT INFORMATION
  Report Type: Spontaneous
  Country: US (occurrence: US)
  Receive Date: 20250502
  Receipt Date: 20250502
  Transmission Date: 20250716
  Serious: Yes (Other)
  Sender: AMGEN
  Company Number: US-AMGEN-USASP2025084698

PATIENT
  Sex: Male

DRUGS (1)
  1. KRYSTEXXA [Suspect]
     Active Substance: PEGLOTICASE
     Indication: Gout
     Route: 065

REACTIONS (1)
  - Anaphylactic reaction [Unknown]
